FAERS Safety Report 6690771-6 (Version None)
Quarter: 2010Q2

REPORT INFORMATION
  Report Type: 
  Country: None (occurrence: None)
  Receive Date: 20100421
  Receipt Date: 20100409
  Transmission Date: 20101027
  Serious: Yes (Other)
  Sender: FDA-Public Use
  Company Number: GB-PFIZER INC-2010029410

PATIENT
  Age: 46 Year
  Sex: Female
  Weight: 62 kg

DRUGS (3)
  1. SERTRALINE HYDROCHLORIDE [Suspect]
     Indication: DEPRESSION
     Dosage: 100 MG
     Route: 048
     Dates: start: 20061107
  2. VENTOLIN [Concomitant]
     Indication: ASTHMA
     Dosage: 2 DOSE FORMS AS NEEDED (200MG/DOSE)
     Route: 055
     Dates: start: 20000103
  3. FLIXOTIDE ^ALLEN + HANBURYS^ [Concomitant]
     Indication: ASTHMA
     Dosage: 2 DOSE FORMS (PUFFS) TWICE DAILY (100MG/DOSE)
     Route: 055
     Dates: start: 20000103

REACTIONS (3)
  - ABNORMAL BEHAVIOUR [None]
  - AGITATION [None]
  - MALAISE [None]
